FAERS Safety Report 5650386-5 (Version None)
Quarter: 2008Q1

REPORT INFORMATION
  Report Type: 
  Country: None (occurrence: None)
  Receive Date: 20080305
  Receipt Date: 20080229
  Transmission Date: 20080703
  Serious: Yes (Death, Hospitalization)
  Sender: FDA-Public Use
  Company Number: SE-BRISTOL-MYERS SQUIBB COMPANY-14096143

PATIENT
  Age: 69 Year
  Sex: Female

DRUGS (10)
  1. PARAPLATIN [Suspect]
     Indication: LUNG NEOPLASM MALIGNANT
     Dosage: 1DOSAGE FORM=10MG/ML
     Dates: start: 20080117, end: 20080123
  2. NAVELBINE [Suspect]
     Indication: LUNG NEOPLASM MALIGNANT
     Dosage: NAVELBINE CAPS,SOFT 20MG.TREATMENT STARTED:1A ON 17JAN08,1B ON 23JAN08
     Dates: start: 20080123, end: 20080202
  3. NEXIUM [Concomitant]
  4. OXYCONTIN [Concomitant]
  5. INSULATARD [Concomitant]
  6. ALVEDON [Concomitant]
  7. SOBRIL [Concomitant]
  8. DIGOXIN [Concomitant]
  9. NICOTINE [Concomitant]
  10. FORLAX [Concomitant]

REACTIONS (8)
  - ADVERSE DRUG REACTION [None]
  - AGRANULOCYTOSIS [None]
  - EATING DISORDER [None]
  - FATIGUE [None]
  - GENERAL PHYSICAL HEALTH DETERIORATION [None]
  - HYPOTENSION [None]
  - NAUSEA [None]
  - SEPSIS [None]
